FAERS Safety Report 9486160 (Version 2)
Quarter: 2013Q4

REPORT INFORMATION
  Report Type: Spontaneous
  Country: US (occurrence: US)
  Receive Date: 20130829
  Receipt Date: 20131021
  Transmission Date: 20140711
  Serious: Yes (Hospitalization)
  Sender: FDA-Public Use
  Company Number: US-009507513-1308USA013301

PATIENT
  Age: 90 Year
  Sex: Male

DRUGS (9)
  1. ASMANEX TWISTHALER [Suspect]
     Indication: ASTHMA
     Dosage: ONE PUFF IN THE EVENING 220Y
     Route: 055
     Dates: start: 20110120
  2. COMBIVENT [Concomitant]
  3. FOSAMAX [Concomitant]
  4. PRINIVIL [Concomitant]
  5. FINASTERIDE [Concomitant]
  6. ATENOL [Concomitant]
  7. DIGOXIN [Concomitant]
  8. ZOCOR [Concomitant]
  9. DALIRESP [Concomitant]

REACTIONS (2)
  - Dyspnoea [Recovering/Resolving]
  - Product quality issue [Unknown]
